FAERS Safety Report 7792831-5 (Version None)
Quarter: 2011Q4

REPORT INFORMATION
  Report Type: 
  Country: None (occurrence: None)
  Receive Date: 20111003
  Receipt Date: 20110930
  Transmission Date: 20120403
  Serious: Yes (Death)
  Sender: FDA-Public Use
  Company Number: US-GLAXOSMITHKLINE-A0946637A

PATIENT
  Sex: Female
  Weight: 85.5 kg

DRUGS (1)
  1. ROSIGLITAZONE MALEATE [Suspect]
     Indication: DIABETES MELLITUS
     Route: 048

REACTIONS (1)
  - DEATH [None]
